FAERS Safety Report 18440396 (Version 1)
Quarter: 2020Q4

REPORT INFORMATION
  Report Type: Spontaneous
  Country: US (occurrence: US)
  Receive Date: 20201029
  Receipt Date: 20201029
  Transmission Date: 20210114
  Serious: Yes (Hospitalization)
  Sender: FDA-Public Use
  Company Number: None

PATIENT
  Age: 78 Year
  Sex: Female

DRUGS (6)
  1. REPATHA [Suspect]
     Active Substance: EVOLOCUMAB
     Indication: HYPERLIPIDAEMIA
     Route: 058
     Dates: start: 20200103
  2. LEVOTHYROXINE. [Suspect]
     Active Substance: LEVOTHYROXINE
  3. DULOXETINE. [Suspect]
     Active Substance: DULOXETINE
  4. PROPRANOLOL [Suspect]
     Active Substance: PROPRANOLOL HYDROCHLORIDE
  5. CALCIUM + FIBER [Concomitant]
  6. ALENDRONATE [Suspect]
     Active Substance: ALENDRONATE SODIUM

REACTIONS (2)
  - Therapy interrupted [None]
  - Gallbladder operation [None]

NARRATIVE: CASE EVENT DATE: 20201027
